FAERS Safety Report 11018403 (Version 4)
Quarter: 2016Q4

REPORT INFORMATION
  Report Type: Spontaneous
  Country: US (occurrence: US)
  Receive Date: 20150412
  Receipt Date: 20161220
  Transmission Date: 20170206
  Serious: Yes (Death, Life-Threatening, Hospitalization, Other)
  Sender: FDA-Public Use
  Company Number: US-JNJFOC-20131112270

PATIENT

DRUGS (3)
  1. PALIFOSFAMIDE [Suspect]
     Active Substance: PALIFOSFAMIDE
     Indication: SARCOMA METASTATIC
     Dosage: DAYS 1, 2, 3 EVERY 21 DAYS FOR UP TO 6 CYCLES
     Route: 042
  2. PLACEBO [Suspect]
     Active Substance: UNSPECIFIED INGREDIENT
     Indication: SARCOMA METASTATIC
     Dosage: DAYS 1, 2, 3 EVERY 21 DAYS FOR UP TO 6 CYCLES
     Route: 042
  3. DOXORUBICIN [Suspect]
     Active Substance: DOXORUBICIN
     Indication: SARCOMA METASTATIC
     Dosage: DAY 1
     Route: 042

REACTIONS (81)
  - Neutropenia [Unknown]
  - Anaemia [Unknown]
  - Anal fissure [Unknown]
  - Pneumonia [Unknown]
  - Alanine aminotransferase abnormal [Unknown]
  - Ejection fraction decreased [Unknown]
  - Electrolyte imbalance [Unknown]
  - Hyperglycaemia [Unknown]
  - Flank pain [Unknown]
  - Syncope [Unknown]
  - Amenorrhoea [Unknown]
  - Female genital tract fistula [Unknown]
  - Rash [Unknown]
  - Hypotension [Unknown]
  - Sepsis [Fatal]
  - Adverse drug reaction [Unknown]
  - Duodenal ulcer perforation [Unknown]
  - Staphylococcal infection [Unknown]
  - Upper respiratory tract infection [Unknown]
  - Creatinine renal clearance decreased [Unknown]
  - Encephalopathy [Unknown]
  - Insomnia [Unknown]
  - Dysgeusia [Unknown]
  - Oropharyngeal pain [Unknown]
  - Dyspnoea [Unknown]
  - Mucosal inflammation [Unknown]
  - Stomatitis [Unknown]
  - Constipation [Unknown]
  - Anal inflammation [Unknown]
  - Fall [Unknown]
  - Erectile dysfunction [Unknown]
  - Phlebitis [Unknown]
  - Hiccups [Unknown]
  - Hypertension [Unknown]
  - Neutropenic sepsis [Unknown]
  - Asthenia [Unknown]
  - Thrombocytopenia [Unknown]
  - Febrile neutropenia [Unknown]
  - Fatigue [Unknown]
  - Weight decreased [Unknown]
  - Alopecia [Unknown]
  - Septic shock [Fatal]
  - Urinary tract infection [Unknown]
  - Hyponatraemia [Unknown]
  - Hypophosphataemia [Unknown]
  - Chronic kidney disease [Unknown]
  - Ureterolithiasis [Unknown]
  - Pulmonary embolism [Unknown]
  - Pleural effusion [Unknown]
  - Dyspepsia [Unknown]
  - Gastrooesophageal reflux disease [Unknown]
  - Dehydration [Unknown]
  - Deep vein thrombosis [Unknown]
  - Proteinuria [Unknown]
  - Rhinorrhoea [Unknown]
  - Hypokalaemia [Unknown]
  - Pyrexia [Unknown]
  - Diarrhoea [Unknown]
  - Lower gastrointestinal haemorrhage [Unknown]
  - Lung infection [Unknown]
  - Headache [Unknown]
  - Blood creatinine abnormal [Unknown]
  - Nausea [Unknown]
  - Decreased appetite [Unknown]
  - Oesophagitis [Unknown]
  - Oedema peripheral [Unknown]
  - Genital herpes [Unknown]
  - Herpes zoster [Unknown]
  - Tonsillitis [Unknown]
  - Gamma-glutamyltransferase increased [Unknown]
  - Haematuria [Unknown]
  - Embolism [Unknown]
  - Dizziness [Unknown]
  - Cough [Unknown]
  - Vomiting [Unknown]
  - Haemorrhoids [Unknown]
  - Gastrointestinal toxicity [Unknown]
  - Campylobacter infection [Unknown]
  - Oedema genital [Unknown]
  - Dry mouth [Unknown]
  - Product use issue [Unknown]
